FAERS Safety Report 23396881 (Version 1)
Quarter: 2024Q1

REPORT INFORMATION
  Report Type: Spontaneous
  Country: US (occurrence: None)
  Receive Date: 20240112
  Receipt Date: 20240112
  Transmission Date: 20240409
  Serious: No
  Sender: FDA-Public Use
  Company Number: None

PATIENT
  Age: 5 Month
  Sex: Female

DRUGS (1)
  1. PHYTONADIONE [Suspect]
     Active Substance: PHYTONADIONE
     Dosage: FREQUENCY : ONCE;?
     Route: 030

REACTIONS (23)
  - Scleroderma-like reaction [None]
  - Skin texture abnormal [None]
  - Skin lesion [None]
  - Skin mass [None]
  - Joint stiffness [None]
  - Arthralgia [None]
  - Dermatitis [None]
  - Skin injury [None]
  - Hidradenitis [None]
  - Soft tissue mass [None]
  - Hypokinesia [None]
  - Joint injury [None]
  - Lymphatic malformation [None]
  - Gait disturbance [None]
  - Limb injury [None]
  - Tendon injury [None]
  - Ligament injury [None]
  - Muscle injury [None]
  - Arthritis [None]
  - Intermittent claudication [None]
  - Connective tissue disorder [None]
  - Infection [None]
  - Disease complication [None]

NARRATIVE: CASE EVENT DATE: 20211202
